APPROVED DRUG PRODUCT: CHLORHEXIDINE GLUCONATE
Active Ingredient: CHLORHEXIDINE GLUCONATE
Strength: 2%
Dosage Form/Route: CLOTH;TOPICAL
Application: N021669 | Product #001
Applicant: SAGE PRODUCTS INC
Approved: Apr 25, 2005 | RLD: Yes | RS: Yes | Type: OTC

PATENTS:
Patent 7427574 | Expires: Apr 25, 2026
Patent 7935093 | Expires: Oct 2, 2027